FAERS Safety Report 5919253-3 (Version None)
Quarter: 2008Q4

REPORT INFORMATION
  Report Type: 
  Country: None (occurrence: None)
  Receive Date: 20081015
  Receipt Date: 20081002
  Transmission Date: 20090506
  Serious: Yes (Other)
  Sender: FDA-Public Use
  Company Number: PHHY2008JP20576

PATIENT
  Age: 6 Year
  Sex: Male

DRUGS (1)
  1. GLEEVEC [Suspect]
     Indication: CHRONIC MYELOID LEUKAEMIA
     Dosage: 300 MG, QD
     Route: 048
     Dates: start: 20071120, end: 20080902

REACTIONS (3)
  - HEPAPLASTIN INCREASED [None]
  - THERAPY RESPONDER [None]
  - TRANSPLANT [None]
